FAERS Safety Report 24316706 (Version 1)
Quarter: 2024Q3

REPORT INFORMATION
  Report Type: Spontaneous
  Country: SE (occurrence: None)
  Receive Date: 20240913
  Receipt Date: 20240913
  Transmission Date: 20241016
  Serious: Yes (Disabling)
  Sender: ASTRAZENECA
  Company Number: 2024A203663

PATIENT
  Age: 73 Year
  Sex: Female
  Weight: 62 kg

DRUGS (9)
  1. TAGRISSO [Suspect]
     Active Substance: OSIMERTINIB
     Indication: Lung adenocarcinoma
     Dosage: 1X1
     Route: 048
     Dates: start: 20230911
  2. CANDESARTAN [Concomitant]
     Active Substance: CANDESARTAN
     Route: 048
     Dates: start: 20231103
  3. METOCLOPRAMIDE [Concomitant]
     Active Substance: METOCLOPRAMIDE
     Dosage: 1 TABLETT VID BEHOV, H?GST 3 TABLETTER PER DYGN10.0MG INTERMITTENT
     Route: 048
     Dates: start: 20230821
  4. ESCITALOPRAM [Concomitant]
     Active Substance: ESCITALOPRAM OXALATE
     Route: 048
     Dates: start: 20230821
  5. BETOLVEX [Concomitant]
     Route: 048
     Dates: start: 20230822
  6. EDOXABAN TOSYLATE [Concomitant]
     Active Substance: EDOXABAN TOSYLATE
     Route: 048
     Dates: start: 20240306
  7. MOVICOL [Concomitant]
     Active Substance: POLYETHYLENE GLYCOL 3350\POTASSIUM CHLORIDE\SODIUM BICARBONATE\SODIUM CHLORIDE
     Dosage: 1 DOSP?SE VID BEHOV 1 G?NGER DAGLIGEN1.0DF INTERMITTENT
     Route: 048
     Dates: start: 20231031
  8. BETAPRED [Concomitant]
     Active Substance: BETAMETHASONE SODIUM PHOSPHATE
     Dates: start: 20240306, end: 20240807
  9. FOLVIDON [Concomitant]
     Route: 048
     Dates: start: 20230822

REACTIONS (4)
  - Dysarthria [Not Recovered/Not Resolved]
  - Aphasia [Not Recovered/Not Resolved]
  - Apraxia [Not Recovered/Not Resolved]
  - Muscular weakness [Not Recovered/Not Resolved]

NARRATIVE: CASE EVENT DATE: 20240606
